FAERS Safety Report 15725288 (Version 1)
Quarter: 2018Q4

REPORT INFORMATION
  Report Type: Spontaneous
  Country: FR (occurrence: FR)
  Receive Date: 20181215
  Receipt Date: 20181215
  Transmission Date: 20190205
  Serious: Yes (Death, Hospitalization)
  Sender: FDA-Public Use
  Company Number: FR-TEVA-164346ISR

PATIENT
  Age: 14 Year
  Sex: Female

DRUGS (2)
  1. VINCRISTINE [Suspect]
     Active Substance: VINCRISTINE
     Dosage: 2 MILLIGRAM DAILY;
     Route: 042
     Dates: start: 20070315, end: 20070315
  2. METHOTREXATE. [Suspect]
     Active Substance: METHOTREXATE
     Dosage: 136 MILLIGRAM DAILY;
     Route: 042
     Dates: start: 20070315, end: 20070315

REACTIONS (1)
  - Septic shock [Fatal]

NARRATIVE: CASE EVENT DATE: 20070321
